FAERS Safety Report 24167706 (Version 4)
Quarter: 2024Q3

REPORT INFORMATION
  Report Type: Spontaneous
  Country: US (occurrence: US)
  Receive Date: 20240802
  Receipt Date: 20240909
  Transmission Date: 20241017
  Serious: Yes (Hospitalization)
  Sender: KARYOPHARM THERAPEUTICS
  Company Number: US-KARYOPHARM-2024KPT001387

PATIENT

DRUGS (21)
  1. XPOVIO [Suspect]
     Active Substance: SELINEXOR
     Indication: Plasma cell myeloma in remission
     Dosage: 40 MG, 2X/WEEK
     Route: 048
     Dates: start: 202407
  2. XPOVIO [Suspect]
     Active Substance: SELINEXOR
     Dosage: 40 MG, WEEKLY
     Route: 048
     Dates: start: 2024, end: 2024
  3. VENLAFAXINE [Concomitant]
     Active Substance: VENLAFAXINE HYDROCHLORIDE
  4. TRIAMCINOLONE [Concomitant]
     Active Substance: TRIAMCINOLONE
  5. TIZANIDINE [Concomitant]
     Active Substance: TIZANIDINE
  6. SILDENAFIL [Concomitant]
     Active Substance: SILDENAFIL
  7. PRAVASTATIN [Concomitant]
     Active Substance: PRAVASTATIN
  8. PERIDEX [CHLORHEXIDINE GLUCONATE] [Concomitant]
  9. PENTOXIFYLLINE [Concomitant]
     Active Substance: PENTOXIFYLLINE
  10. OMEPRAZOLE [Concomitant]
     Active Substance: OMEPRAZOLE
  11. FLONASE [Concomitant]
     Active Substance: FLUTICASONE PROPIONATE
  12. DOXYCYCLINE [Concomitant]
     Active Substance: DOXYCYCLINE\DOXYCYCLINE HYCLATE
  13. DESONIDE [Concomitant]
     Active Substance: DESONIDE
  14. COLESTID [Concomitant]
     Active Substance: COLESTIPOL HYDROCHLORIDE
  15. CIPROFLOXACIN [Concomitant]
     Active Substance: CIPROFLOXACIN
  16. CEPHALEXIN [Concomitant]
     Active Substance: CEPHALEXIN
  17. CALCIPOTRIENE [Concomitant]
     Active Substance: CALCIPOTRIENE
  18. BACTRIM [Concomitant]
     Active Substance: SULFAMETHOXAZOLE\TRIMETHOPRIM
  19. ALPRAZOLAM [Concomitant]
     Active Substance: ALPRAZOLAM
  20. ASPIRIN [Concomitant]
     Active Substance: ASPIRIN
  21. ACYCLOVIR [Concomitant]
     Active Substance: ACYCLOVIR

REACTIONS (2)
  - Upper limb fracture [Recovering/Resolving]
  - Plasma cell myeloma [Unknown]

NARRATIVE: CASE EVENT DATE: 20240101
